FAERS Safety Report 8578664 (Version 2)
Quarter: 2013Q4

REPORT INFORMATION
  Report Type: Spontaneous
  Country: FR (occurrence: FR)
  Receive Date: 20120524
  Receipt Date: 20131113
  Transmission Date: 20140711
  Serious: Yes (Life-Threatening, Hospitalization)
  Sender: FDA-Public Use
  Company Number: FR-GLAXOSMITHKLINE-B0575594A

PATIENT
  Age: 15 Year
  Sex: Female

DRUGS (4)
  1. LAMICTAL [Suspect]
     Indication: EPILEPSY
     Route: 048
     Dates: start: 20090331, end: 20090415
  2. DEPAKINE [Suspect]
     Indication: EPILEPSY
     Route: 048
     Dates: start: 20081231, end: 20090418
  3. NORLEVO [Concomitant]
     Indication: CONTRACEPTION
     Route: 065
     Dates: start: 20090411, end: 20090411
  4. CLOBAZAM [Concomitant]
     Indication: EPILEPSY
     Route: 065

REACTIONS (24)
  - Toxic epidermal necrolysis [Recovered/Resolved with Sequelae]
  - Erythema [Recovered/Resolved]
  - Face oedema [Recovered/Resolved]
  - Pruritus [Recovered/Resolved]
  - Lymphadenopathy [Recovered/Resolved]
  - Rash maculo-papular [Recovered/Resolved]
  - Dermatitis bullous [Recovered/Resolved]
  - Mucosal erosion [Recovered/Resolved]
  - Conjunctival hyperaemia [Recovered/Resolved]
  - Nikolsky^s sign [Recovered/Resolved]
  - Pyrexia [Recovered/Resolved]
  - Respiratory tract congestion [Recovered/Resolved]
  - Skin disorder [Recovered/Resolved]
  - Toxic skin eruption [Recovered/Resolved]
  - Lacrimation increased [Recovered/Resolved]
  - Keratitis [Recovered/Resolved]
  - Inflammation [Recovered/Resolved]
  - Vulvar erosion [Recovered/Resolved]
  - Onycholysis [Unknown]
  - Nail growth abnormal [Recovered/Resolved]
  - Skin depigmentation [Unknown]
  - Dry eye [Unknown]
  - Purulence [Unknown]
  - Drug interaction [Unknown]
